FAERS Safety Report 7510787-7 (Version None)
Quarter: 2011Q2

REPORT INFORMATION
  Report Type: 
  Country: None (occurrence: None)
  Receive Date: 20110530
  Receipt Date: 20110526
  Transmission Date: 20111010
  Serious: Yes (Life-Threatening, Hospitalization)
  Sender: FDA-Public Use
  Company Number: US-BRISTOL-MYERS SQUIBB COMPANY-15536501

PATIENT
  Age: 50 Year
  Sex: Female

DRUGS (4)
  1. IPILIMUMAB [Suspect]
     Indication: MALIGNANT MELANOMA
     Dosage: 03-03JAN11(218MG),24-24-JAN11(209MG)
     Route: 042
     Dates: start: 20110103, end: 20110124
  2. EFFEXOR XR [Concomitant]
     Route: 048
     Dates: start: 20100325
  3. ABILIFY [Concomitant]
     Dosage: AM
     Route: 048
     Dates: start: 20100722
  4. INDERAL [Concomitant]
     Route: 048
     Dates: start: 20090923

REACTIONS (4)
  - INTESTINAL PERFORATION [None]
  - DIARRHOEA [None]
  - COLITIS [None]
  - ENTERITIS [None]
